FAERS Safety Report 21395736 (Version 7)
Quarter: 2024Q3

REPORT INFORMATION
  Report Type: Report from Study
  Country: CA (occurrence: CA)
  Receive Date: 20220930
  Receipt Date: 20240911
  Transmission Date: 20241017
  Serious: Yes (Hospitalization, Other)
  Sender: ROCHE
  Company Number: CA-002147023-NVSC2022CA196810

PATIENT
  Age: 26 Year
  Sex: Female

DRUGS (7)
  1. XOLAIR [Suspect]
     Active Substance: OMALIZUMAB
     Indication: Asthma
     Route: 058
     Dates: start: 20180918
  2. XOLAIR [Suspect]
     Active Substance: OMALIZUMAB
     Indication: Chronic spontaneous urticaria
     Route: 058
  3. XOLAIR [Suspect]
     Active Substance: OMALIZUMAB
     Indication: Anaemia
     Route: 058
  4. BENADRYL [Concomitant]
     Active Substance: DIPHENHYDRAMINE HYDROCHLORIDE
     Indication: Urticaria
     Dosage: 2 DOSAGE FORM (OTHER)
  5. CLARITIN [Concomitant]
     Active Substance: LORATADINE
     Indication: Urticaria
     Dosage: 2 DOSAGE FORM (OTHER)
  6. PREDNISONE [Concomitant]
     Active Substance: PREDNISONE
     Indication: Product used for unknown indication
  7. ZOLOFT [Concomitant]
     Active Substance: SERTRALINE HYDROCHLORIDE
     Indication: Product used for unknown indication
     Dosage: 1 DOSAGE FORM, QD

REACTIONS (8)
  - Anaphylactic reaction [Unknown]
  - Seasonal allergy [Unknown]
  - Urticaria [Unknown]
  - Ehlers-Danlos syndrome [Not Recovered/Not Resolved]
  - Haematoma [Unknown]
  - Pain [Unknown]
  - Off label use [Unknown]
  - Incorrect route of product administration [Unknown]
